FAERS Safety Report 24994495 (Version 1)
Quarter: 2025Q1

REPORT INFORMATION
  Report Type: Spontaneous
  Country: US (occurrence: None)
  Receive Date: 20250220
  Receipt Date: 20250220
  Transmission Date: 20250408
  Serious: Yes (Hospitalization, Disabling)
  Sender: FDA-CTU
  Company Number: None

PATIENT
  Age: 54 Year
  Sex: Female
  Weight: 67.5 kg

DRUGS (5)
  1. HALDOL [Suspect]
     Active Substance: HALOPERIDOL
     Indication: Refusal of treatment by patient
     Route: 030
     Dates: start: 20220609, end: 20220609
  2. THYROID [Concomitant]
     Active Substance: LEVOTHYROXINE\LIOTHYRONINE
  3. ZYRTEC [Concomitant]
     Active Substance: CETIRIZINE HYDROCHLORIDE
  4. CYMBALTA [Concomitant]
     Active Substance: DULOXETINE HYDROCHLORIDE
  5. ADDERALL [Concomitant]
     Active Substance: AMPHETAMINE ASPARTATE\AMPHETAMINE SULFATE\DEXTROAMPHETAMINE SACCHARATE\DEXTROAMPHETAMINE SULFATE

REACTIONS (11)
  - Amnesia [None]
  - Balance disorder [None]
  - Fall [None]
  - Upper limb fracture [None]
  - Multiple fractures [None]
  - Impaired driving ability [None]
  - Cognitive disorder [None]
  - Aphasia [None]
  - Dyspnoea [None]
  - Product prescribing issue [None]
  - Incorrect dose administered [None]

NARRATIVE: CASE EVENT DATE: 20220609
